FAERS Safety Report 20791890 (Version 1)
Quarter: 2022Q2

REPORT INFORMATION
  Report Type: Spontaneous
  Country: US (occurrence: None)
  Receive Date: 20220505
  Receipt Date: 20220505
  Transmission Date: 20220720
  Serious: No
  Sender: FDA-Public Use
  Company Number: None

PATIENT
  Age: 69 Year
  Sex: Male
  Weight: 84.78 kg

DRUGS (16)
  1. WELIREG [Suspect]
     Active Substance: BELZUTIFAN
     Indication: Renal cancer
     Dosage: FREQUENCY : DAILY;?
     Route: 048
     Dates: start: 20210929
  2. ACETAMINOPHEN [Concomitant]
     Active Substance: ACETAMINOPHEN
  3. CALCITIROL [Concomitant]
  4. CALCIUM [Concomitant]
     Active Substance: CALCIUM
  5. CETIRIZINE [Concomitant]
     Active Substance: CETIRIZINE HYDROCHLORIDE
  6. CLOPIDOGREL [Concomitant]
     Active Substance: CLOPIDOGREL BISULFATE
  7. ISOSORBIDE [Concomitant]
     Active Substance: ISOSORBIDE
  8. LEVEMIR [Concomitant]
     Active Substance: INSULIN DETEMIR
  9. METOPROLOL [Concomitant]
     Active Substance: METOPROLOL
  10. NITROGLYCERIN [Concomitant]
     Active Substance: NITROGLYCERIN
  11. NOVOLOG [Concomitant]
     Active Substance: INSULIN ASPART
  12. PANTOPRAZOLE [Concomitant]
     Active Substance: PANTOPRAZOLE
  13. SUMATRIOTAN [Concomitant]
  14. VELTASSA [Concomitant]
     Active Substance: PATIROMER
  15. VITAMIN D [Concomitant]
     Active Substance: VITAMIN D NOS
  16. WARFARIN [Concomitant]
     Active Substance: WARFARIN

REACTIONS (1)
  - Myocardial infarction [None]
